FAERS Safety Report 9832415 (Version 1)
Quarter: 2014Q1

REPORT INFORMATION
  Report Type: Spontaneous
  Country: US (occurrence: US)
  Receive Date: 20140121
  Receipt Date: 20140121
  Transmission Date: 20141002
  Serious: Yes (Hospitalization, Other)
  Sender: FDA-Public Use
  Company Number: US-BAXTER-2014BAX002443

PATIENT
  Age: 1 Year
  Sex: Male
  Weight: 15 kg

DRUGS (4)
  1. ADVATE [Suspect]
     Indication: FACTOR VIII DEFICIENCY
     Route: 042
     Dates: start: 2010, end: 20120305
  2. HEPARIN SODIUM IN 0.9% SODIUM CHLORIDE INJECTION [Concomitant]
     Indication: CATHETER MANAGEMENT
  3. 0.9% SODIUM CHLORIDE INJECTION [Concomitant]
     Indication: CATHETER MANAGEMENT
  4. AMICAR [Concomitant]
     Indication: MOUTH HAEMORRHAGE
     Route: 048

REACTIONS (7)
  - Influenza [Recovered/Resolved]
  - Vomiting [Recovered/Resolved]
  - Unresponsive to stimuli [Recovered/Resolved]
  - Haemorrhage intracranial [Recovered/Resolved]
  - Head injury [Recovered/Resolved]
  - Congenital thrombocyte disorder [Not Recovered/Not Resolved]
  - Insomnia [Not Recovered/Not Resolved]
